FAERS Safety Report 18107530 (Version 3)
Quarter: 2021Q1

REPORT INFORMATION
  Report Type: Other
  Country: US (occurrence: US)
  Receive Date: 20200804
  Receipt Date: 20210326
  Transmission Date: 20210419
  Serious: Yes (Hospitalization, Other)
  Sender: FDA-Public Use
  Company Number: US-ROCHE-2650694

PATIENT
  Age: 28 Year
  Sex: Female
  Weight: 98.52 kg

DRUGS (16)
  1. OCREVUS [Suspect]
     Active Substance: OCRELIZUMAB
     Indication: RELAPSING-REMITTING MULTIPLE SCLEROSIS
     Route: 042
     Dates: start: 201908
  2. ALPRAZOLAM. [Concomitant]
     Active Substance: ALPRAZOLAM
     Indication: DEPRESSION
  3. OCREVUS [Suspect]
     Active Substance: OCRELIZUMAB
     Route: 042
     Dates: start: 201906
  4. BENADRYL [Concomitant]
     Active Substance: DIPHENHYDRAMINE HYDROCHLORIDE
     Dosage: GIVEN BEFORE OCREVUS INFUSION
     Route: 042
  5. ALBUTEROL. [Concomitant]
     Active Substance: ALBUTEROL
     Indication: ASTHMA
     Dosage: Q4?6 HOURS PRN
     Route: 055
     Dates: start: 2018
  6. NASOCORT [Concomitant]
     Active Substance: BUDESONIDE
     Indication: ASTHMA
     Dosage: 1 PUFF EVERY EACH NOSTRIL MORNING AND NIGHT
     Route: 055
     Dates: start: 2018
  7. ALPRAZOLAM. [Concomitant]
     Active Substance: ALPRAZOLAM
     Indication: ANXIETY
     Dosage: TAKES 0.5?1 MG PRN
     Route: 048
  8. FLOVENT [Concomitant]
     Active Substance: FLUTICASONE PROPIONATE
     Indication: ASTHMA
     Dosage: 2 PUFFS BID
     Route: 055
     Dates: start: 2018
  9. BENADRYL [Concomitant]
     Active Substance: DIPHENHYDRAMINE HYDROCHLORIDE
     Dosage: GIVEN BEFORE OCREVUS INFUSION
     Route: 048
  10. OCREVUS [Suspect]
     Active Substance: OCRELIZUMAB
     Indication: MULTIPLE SCLEROSIS
     Route: 042
     Dates: start: 20190722
  11. VALACICLOVIR [Suspect]
     Active Substance: VALACYCLOVIR HYDROCHLORIDE
     Indication: ORAL HERPES
     Dosage: TAKE FOR 7 DAYS WHEN HAVING COLD SORES
     Route: 048
     Dates: start: 20201113
  12. ALPRAZOLAM. [Concomitant]
     Active Substance: ALPRAZOLAM
     Indication: ANXIETY
     Dosage: ONGOING: YES (PT TAKE HALF A PILL OR A FULL 1 MG PILL AS NEEDED )
     Route: 048
  13. ALPRAZOLAM. [Concomitant]
     Active Substance: ALPRAZOLAM
     Indication: DEPRESSION
  14. ACYCLOVIR. [Suspect]
     Active Substance: ACYCLOVIR
     Indication: ORAL HERPES
     Route: 065
     Dates: start: 201911
  15. CLONIDINE. [Concomitant]
     Active Substance: CLONIDINE
     Dosage: TAKE ONLY IF BLOOD PRESSURE HIGH
     Route: 048
     Dates: start: 20200924
  16. ONDANSETRON [Concomitant]
     Active Substance: ONDANSETRON
     Indication: NAUSEA
     Dosage: PRN
     Route: 048
     Dates: start: 201808

REACTIONS (18)
  - Fall [Unknown]
  - Blood pressure increased [Unknown]
  - Oral herpes [Unknown]
  - Drug ineffective [Unknown]
  - Body temperature abnormal [Unknown]
  - Multiple sclerosis relapse [Not Recovered/Not Resolved]
  - Pharyngeal swelling [Recovered/Resolved]
  - Anaphylactic shock [Recovered/Resolved]
  - Vitamin D decreased [Unknown]
  - Folate deficiency [Unknown]
  - Vitamin B12 deficiency [Unknown]
  - Rash [Recovered/Resolved]
  - Throat irritation [Unknown]
  - Nausea [Unknown]
  - Throat tightness [Unknown]
  - Multiple sclerosis [Unknown]
  - Dyspnoea [Recovered/Resolved]
  - Respiratory arrest [Recovered/Resolved with Sequelae]

NARRATIVE: CASE EVENT DATE: 201906
